FAERS Safety Report 18333509 (Version 1)
Quarter: 2020Q4

REPORT INFORMATION
  Report Type: Other
  Country: AR (occurrence: AR)
  Receive Date: 20201001
  Receipt Date: 20201001
  Transmission Date: 20210113
  Serious: Yes (Other)
  Sender: FDA-Public Use
  Company Number: AR-ROCHE-2477831

PATIENT
  Age: 62 Year
  Sex: Male

DRUGS (5)
  1. LOSARTAN. [Concomitant]
     Active Substance: LOSARTAN
     Indication: PRODUCT USED FOR UNKNOWN INDICATION
     Route: 065
  2. XOLAIR [Suspect]
     Active Substance: OMALIZUMAB
     Dosage: 450 MG, QMO (3 DF)
     Route: 065
     Dates: start: 20190808
  3. SALBUTAMOL [Concomitant]
     Active Substance: ALBUTEROL
     Indication: PRODUCT USED FOR UNKNOWN INDICATION
     Route: 065
  4. XOLAIR [Suspect]
     Active Substance: OMALIZUMAB
     Indication: ASTHMA
     Dosage: 450 MG, QMO (3 DF)
     Route: 065
     Dates: start: 20170612
  5. XOLAIR [Suspect]
     Active Substance: OMALIZUMAB
     Dosage: 300 MG, QMO (3 DF)
     Route: 058
     Dates: start: 20170612

REACTIONS (8)
  - Pneumonia viral [Not Recovered/Not Resolved]
  - Asthma [Unknown]
  - Drug intolerance [Unknown]
  - Catarrh [Not Recovered/Not Resolved]
  - Agitation [Unknown]
  - Dyspnoea [Unknown]
  - Pneumonia bacterial [Recovered/Resolved]
  - Asthmatic crisis [Unknown]

NARRATIVE: CASE EVENT DATE: 201908
